FAERS Safety Report 4305643-1 (Version None)
Quarter: 2004Q1

REPORT INFORMATION
  Report Type: 
  Country: None (occurrence: None)
  Receive Date: 20040226
  Receipt Date: 20031222
  Transmission Date: 20041129
  Serious: No
  Sender: FDA-Public Use
  Company Number: US-BRISTOL-MYERS SQUIBB COMPANY-12463881

PATIENT

DRUGS (4)
  1. ABILIFY [Suspect]
  2. NEURONTIN [Concomitant]
  3. WELLBUTRIN SR [Concomitant]
  4. LEXAPRO [Concomitant]

REACTIONS (2)
  - CHOREA [None]
  - MUSCLE TWITCHING [None]
